FAERS Safety Report 4925257-X (Version None)
Quarter: 2006Q1

REPORT INFORMATION
  Report Type: 
  Country: None (occurrence: None)
  Receive Date: 20060223
  Receipt Date: 20060223
  Transmission Date: 20060701
  Serious: Yes (Hospitalization, Other)
  Sender: FDA-Public Use
  Company Number: None

PATIENT
  Sex: Male
  Weight: 97.7 kg

DRUGS (3)
  1. CAMPTOSAR [Suspect]
     Indication: GLIOBLASTOMA MULTIFORME
     Dosage: 221 MG
     Dates: start: 20050926, end: 20060203
  2. TEMOZOLOMIDE [Suspect]
     Dosage: 1650 MG
     Route: 048
     Dates: start: 20060203, end: 20060207
  3. DECADRON SRC [Concomitant]

REACTIONS (8)
  - CELLULITIS [None]
  - CONVULSION [None]
  - DEEP VEIN THROMBOSIS [None]
  - FALL [None]
  - INCOHERENT [None]
  - NEUTROPENIA [None]
  - RESPIRATION ABNORMAL [None]
  - UNRESPONSIVE TO VERBAL STIMULI [None]
